FAERS Safety Report 19952405 (Version 1)
Quarter: 2021Q4

REPORT INFORMATION
  Report Type: Spontaneous
  Country: CN (occurrence: CN)
  Receive Date: 20211013
  Receipt Date: 20211013
  Transmission Date: 20220303
  Serious: Yes (Life-Threatening, Hospitalization, Other)
  Sender: FDA-Public Use
  Company Number: CN-MLMSERVICE-20210930-3139024-1

PATIENT
  Age: 63 Year
  Sex: Male

DRUGS (10)
  1. METHOTREXATE [Suspect]
     Active Substance: METHOTREXATE
     Indication: Central nervous system leukaemia
     Dosage: UNK
     Route: 037
     Dates: start: 2020
  2. METHOTREXATE [Suspect]
     Active Substance: METHOTREXATE
     Indication: Acute promyelocytic leukaemia
     Dosage: HIGH-DOSE, INTERMITTENT
     Dates: start: 2020
  3. CYTARABINE [Suspect]
     Active Substance: CYTARABINE
     Indication: Acute promyelocytic leukaemia
     Dosage: UNK
     Route: 037
     Dates: start: 2020
  4. CYTARABINE [Suspect]
     Active Substance: CYTARABINE
     Indication: Central nervous system leukaemia
     Dosage: MEDIUM-DOSE
     Dates: start: 2020
  5. DEXAMETHASONE [Concomitant]
     Active Substance: DEXAMETHASONE
     Indication: Central nervous system leukaemia
     Dosage: UNK
     Route: 037
     Dates: start: 2020
  6. DEXAMETHASONE [Concomitant]
     Active Substance: DEXAMETHASONE
     Indication: Acute promyelocytic leukaemia
  7. MANNITOL [Concomitant]
     Active Substance: MANNITOL
     Indication: Acute promyelocytic leukaemia
     Dosage: CONTINUOUS
     Route: 042
     Dates: start: 2020
  8. MANNITOL [Concomitant]
     Active Substance: MANNITOL
     Indication: Central nervous system leukaemia
  9. ARSENIC TRIOXIDE [Concomitant]
     Active Substance: ARSENIC TRIOXIDE
     Indication: Acute promyelocytic leukaemia
     Dosage: CONTINUOUS
     Route: 042
     Dates: start: 2020
  10. ARSENIC TRIOXIDE [Concomitant]
     Active Substance: ARSENIC TRIOXIDE
     Indication: Central nervous system leukaemia

REACTIONS (2)
  - Treatment failure [Unknown]
  - Myelosuppression [Unknown]
